FAERS Safety Report 25336855 (Version 2)
Quarter: 2025Q2

REPORT INFORMATION
  Report Type: Report from Study
  Country: US (occurrence: US)
  Receive Date: 20250520
  Receipt Date: 20250602
  Transmission Date: 20250717
  Serious: Yes (Death, Hospitalization, Other)
  Sender: NOVARTIS
  Company Number: US-002147023-NVSC2025US063606

PATIENT
  Sex: Male

DRUGS (18)
  1. LEQVIO [Suspect]
     Active Substance: INCLISIRAN SODIUM
     Indication: Product used for unknown indication
     Route: 058
  2. FLUCONAZOLE [Concomitant]
     Active Substance: FLUCONAZOLE
     Indication: Antifungal prophylaxis
     Dosage: 4 DOSAGE FORM, Q24H (FOR 30 DAYS)
     Route: 048
  3. AZITHROMYCIN [Concomitant]
     Active Substance: AZITHROMYCIN
     Indication: Antibiotic prophylaxis
     Route: 065
  4. ZOSYN [Concomitant]
     Active Substance: PIPERACILLIN SODIUM\TAZOBACTAM SODIUM
     Indication: Antibiotic prophylaxis
     Route: 065
  5. AMPHOTERICIN B [Concomitant]
     Active Substance: AMPHOTERICIN B
     Indication: Product used for unknown indication
     Route: 042
  6. ITRACONAZOLE [Concomitant]
     Active Substance: ITRACONAZOLE
     Indication: Product used for unknown indication
     Dosage: 200 MG, BID
     Route: 048
  7. ATIVAN [Concomitant]
     Active Substance: LORAZEPAM
     Indication: Product used for unknown indication
     Route: 042
  8. MORPHINE [Concomitant]
     Active Substance: MORPHINE
     Indication: Product used for unknown indication
     Route: 065
  9. CLOPIDOGREL [Concomitant]
     Active Substance: CLOPIDOGREL BISULFATE
     Indication: Product used for unknown indication
     Dosage: 1 DOSAGE FORM, QD (FOR 90 DAYS) 75 MG TABLET
     Route: 048
  10. EZETIMIBE [Concomitant]
     Active Substance: EZETIMIBE
     Indication: Product used for unknown indication
     Dosage: 1 DOSAGE FORM, QD (FOR 90 DAYS)
     Route: 048
  11. FERROUS SULFATE [Concomitant]
     Active Substance: FERROUS SULFATE
     Indication: Product used for unknown indication
     Dosage: 1 DOSAGE FORM, QD (65 MG ELEMENTAL IRON, ENTERIC COATED TABLET)
     Route: 048
  12. GABAPENTIN [Concomitant]
     Active Substance: GABAPENTIN
     Indication: Product used for unknown indication
     Dosage: 1 DOSAGE FORM, TID
     Route: 048
  13. LISINOPRIL AND HYDROCHLOROTHIAZIDE [Concomitant]
     Active Substance: HYDROCHLOROTHIAZIDE\LISINOPRIL
     Indication: Product used for unknown indication
     Dosage: 1 DOSAGE FORM, QD (12.5 MG- 10 MG)
     Route: 048
  14. METFORMIN HYDROCHLORIDE [Concomitant]
     Active Substance: METFORMIN HYDROCHLORIDE
     Indication: Product used for unknown indication
     Dosage: 1 DOSAGE FORM, QD (EXTENDED RELEASE)
     Route: 048
  15. METOPROLOL TARTRATE [Concomitant]
     Active Substance: METOPROLOL TARTRATE
     Indication: Product used for unknown indication
     Dosage: 1 DOSAGE FORM, QD
     Route: 048
  16. XARELTO [Concomitant]
     Active Substance: RIVAROXABAN
     Indication: Product used for unknown indication
     Dosage: 1 DOSAGE FORM, BID (2.5 MG TABLET) FOR 35 DAYS
     Route: 048
  17. PANTOPRAZOLE [Concomitant]
     Active Substance: PANTOPRAZOLE
     Indication: Product used for unknown indication
     Dosage: 1 DOSAGE FORM, QD (ENTERIC COATED, 40 MG))
     Route: 048
  18. ASPIRIN [Concomitant]
     Active Substance: ASPIRIN
     Indication: Product used for unknown indication
     Dosage: 1 DOSAGE FORM, QD (CHEWABLE TABLET 81 MG)
     Route: 048

REACTIONS (28)
  - Death [Fatal]
  - Asthenia [Not Recovered/Not Resolved]
  - Dyspnoea [Unknown]
  - Weight decreased [Unknown]
  - Pneumonia [Unknown]
  - Periventricular leukomalacia [Unknown]
  - Carotid arteriosclerosis [Unknown]
  - Cerebral arteriosclerosis [Unknown]
  - Disseminated coccidioidomycosis [Unknown]
  - Deep vein thrombosis [Unknown]
  - Cerebral mass effect [Unknown]
  - Type 2 diabetes mellitus [Unknown]
  - Cardio-respiratory arrest [Unknown]
  - Cerebral haemorrhage [Unknown]
  - Cerebral infarction [Unknown]
  - Brain oedema [Unknown]
  - Gait disturbance [Unknown]
  - Pleural effusion [Unknown]
  - Hypertension [Unknown]
  - Hyperlipidaemia [Unknown]
  - Anaemia macrocytic [Unknown]
  - Hyponatraemia [Recovering/Resolving]
  - Dysphagia [Unknown]
  - Mydriasis [Unknown]
  - Breath sounds abnormal [Unknown]
  - Pulmonary mass [Unknown]
  - Constipation [Unknown]
  - Cerebral ventricle dilatation [Unknown]
